FAERS Safety Report 4688795-3 (Version None)
Quarter: 2005Q2

REPORT INFORMATION
  Report Type: 
  Country: None (occurrence: None)
  Receive Date: 20050610
  Receipt Date: 20050530
  Transmission Date: 20051028
  Serious: Yes (Hospitalization)
  Sender: FDA-Public Use
  Company Number: 2005081292

PATIENT
  Age: 77 Year
  Sex: Male
  Weight: 90.7194 kg

DRUGS (1)
  1. KAOPECTATE (BISMUTH SUBSALICYLATE) [Suspect]
     Indication: DIARRHOEA
     Dosage: 2 TEASPOONFULS TWICE, ORAL
     Route: 048
     Dates: start: 20050530, end: 20050530

REACTIONS (1)
  - RECTAL HAEMORRHAGE [None]
